FAERS Safety Report 24891690 (Version 2)
Quarter: 2025Q1

REPORT INFORMATION
  Report Type: Spontaneous
  Country: US (occurrence: US)
  Receive Date: 20250127
  Receipt Date: 20250210
  Transmission Date: 20250408
  Serious: Yes (Hospitalization)
  Sender: EISAI
  Company Number: US-Eisai-EC-2025-182706

PATIENT
  Age: 67 Year
  Sex: Female

DRUGS (2)
  1. LECANEMAB [Suspect]
     Active Substance: LECANEMAB
  2. LECANEMAB [Suspect]
     Active Substance: LECANEMAB

REACTIONS (2)
  - Amyloid related imaging abnormality-oedema/effusion [Recovering/Resolving]
  - Generalised tonic-clonic seizure [Recovered/Resolved]
